FAERS Safety Report 12898269 (Version 1)
Quarter: 2016Q4

REPORT INFORMATION
  Report Type: Spontaneous
  Country: US (occurrence: US)
  Receive Date: 20161031
  Receipt Date: 20161031
  Transmission Date: 20170207
  Serious: No
  Sender: FDA-Public Use
  Company Number: US-SAGENTPRD-2016-US-000039

PATIENT
  Sex: 0

DRUGS (2)
  1. HEPARIN SODIUM INJECTION, 1 ML, 5000 UNIT/ML [Suspect]
     Active Substance: HEPARIN SODIUM
  2. HEPARIN SODIUM INJECTION, 1 ML, 5000 UNIT/ML [Suspect]
     Active Substance: HEPARIN SODIUM

REACTIONS (1)
  - Drug ineffective [Recovered/Resolved]
